FAERS Safety Report 17475111 (Version 2)
Quarter: 2020Q1

REPORT INFORMATION
  Report Type: Spontaneous
  Country: CH (occurrence: CH)
  Receive Date: 20200228
  Receipt Date: 20200311
  Transmission Date: 20200409
  Serious: Yes (Hospitalization)
  Sender: FDA-Public Use
  Company Number: CH-AMERICAN REGENT INC-2020000544

PATIENT
  Age: 47 Year
  Sex: Female
  Weight: 61.5 kg

DRUGS (3)
  1. FERINJECT [Suspect]
     Active Substance: FERRIC CARBOXYMALTOSE
     Dosage: 500 MG
     Dates: start: 20200113, end: 20200113
  2. FERINJECT [Suspect]
     Active Substance: FERRIC CARBOXYMALTOSE
     Dosage: 500 MG
     Dates: start: 20200203, end: 20200203
  3. FERINJECT [Suspect]
     Active Substance: FERRIC CARBOXYMALTOSE
     Indication: IRON DEFICIENCY
     Dosage: 500 MG
     Dates: start: 20191218, end: 20191218

REACTIONS (6)
  - Otitis externa [Unknown]
  - Pharyngitis [Unknown]
  - Diarrhoea [Recovered/Resolved]
  - Influenza [Unknown]
  - Upper respiratory tract infection [Unknown]
  - Neurological symptom [Unknown]

NARRATIVE: CASE EVENT DATE: 20200202
